FAERS Safety Report 4391536-0 (Version None)
Quarter: 2004Q3

REPORT INFORMATION
  Report Type: 
  Country: None (occurrence: None)
  Receive Date: 20040702
  Receipt Date: 20040422
  Transmission Date: 20050211
  Serious: Yes (Other)
  Sender: FDA-Public Use
  Company Number: 2004UW08149

PATIENT
  Age: 78 Year
  Sex: Male
  Weight: 83.9154 kg

DRUGS (4)
  1. CRESTOR [Suspect]
     Indication: BLOOD CHOLESTEROL INCREASED
  2. COUMADIN [Concomitant]
  3. ALBUTEROL [Concomitant]
  4. WATER PILL [Concomitant]

REACTIONS (2)
  - MYALGIA [None]
  - NIGHT SWEATS [None]
